FAERS Safety Report 4611044-9 (Version None)
Quarter: 2005Q1

REPORT INFORMATION
  Report Type: 
  Country: None (occurrence: None)
  Receive Date: 20050316
  Receipt Date: 20050316
  Transmission Date: 20050727
  Serious: Yes (Life-Threatening)
  Sender: FDA-Public Use
  Company Number: None

PATIENT
  Age: 85 Year
  Sex: Male
  Weight: 97.0698 kg

DRUGS (10)
  1. GLUCOTROL XL [Suspect]
     Indication: DIABETES MELLITUS
     Dosage: 5 MG DAILY
  2. NOVOLOG MIX 70/30 [Suspect]
     Indication: DIABETES MELLITUS
     Dosage: 43 QAM + 20QPM
  3. ASPIRIN [Concomitant]
  4. FOSINOPRIL [Concomitant]
  5. DM2 [Concomitant]
  6. GLUCOSE [Concomitant]
  7. LOPERAMIDE HCL [Concomitant]
  8. METOPROLOL TARTRATE [Concomitant]
  9. OMEPRAZOLE [Concomitant]
  10. SIMVASTATIN [Concomitant]

REACTIONS (4)
  - ASTHENIA [None]
  - HYPOGLYCAEMIA [None]
  - MEDICATION ERROR [None]
  - TREATMENT NONCOMPLIANCE [None]
